FAERS Safety Report 5270079-6 (Version None)
Quarter: 2007Q1

REPORT INFORMATION
  Report Type: 
  Country: None (occurrence: None)
  Receive Date: 20070320
  Receipt Date: 20070319
  Transmission Date: 20070707
  Serious: Yes (Death, Disabling)
  Sender: FDA-Public Use
  Company Number: CZ-BRISTOL-MYERS SQUIBB COMPANY-13719331

PATIENT
  Sex: Female

DRUGS (1)
  1. TAXOL [Suspect]
     Indication: OVARIAN CANCER

REACTIONS (3)
  - BRAIN OEDEMA [None]
  - DEATH [None]
  - NEUROTOXICITY [None]
